FAERS Safety Report 8379996-1 (Version None)
Quarter: 2012Q2

REPORT INFORMATION
  Report Type: 
  Country: None (occurrence: None)
  Receive Date: 20120523
  Receipt Date: 20120514
  Transmission Date: 20120825
  Serious: Yes (Other)
  Sender: FDA-Public Use
  Company Number: US-ASTRAZENECA-2012SE30689

PATIENT
  Age: 44 Year
  Sex: Female
  Weight: 127 kg

DRUGS (4)
  1. DIOVAN [Concomitant]
  2. SYMBICORT [Suspect]
     Indication: ASTHMA
     Dosage: 160/4.5 MCG UNKNOWN FREQUENCY
     Route: 055
  3. SINGULAIR [Concomitant]
  4. PAIN PILLS FOR KNEES [Concomitant]

REACTIONS (2)
  - MUSCULOSKELETAL DISCOMFORT [None]
  - FALL [None]
